FAERS Safety Report 10306303 (Version 2)
Quarter: 2014Q4

REPORT INFORMATION
  Report Type: Spontaneous
  Country: US (occurrence: US)
  Receive Date: 20140715
  Receipt Date: 20141201
  Transmission Date: 20150528
  Serious: Yes (Hospitalization, Other)
  Sender: FDA-Public Use
  Company Number: US-BAYER-2014-106240

PATIENT
  Age: 26 Year
  Sex: Female
  Weight: 62.5 kg

DRUGS (1)
  1. YASMIN [Suspect]
     Active Substance: DROSPIRENONE\ETHINYL ESTRADIOL
     Dosage: UNK
     Dates: start: 200406, end: 20050701

REACTIONS (8)
  - Axillary vein thrombosis [Recovered/Resolved]
  - Injury [None]
  - General physical health deterioration [None]
  - Subclavian vein thrombosis [Recovered/Resolved]
  - Anxiety [None]
  - Deep vein thrombosis [None]
  - Emotional distress [None]
  - Pain [None]

NARRATIVE: CASE EVENT DATE: 20050624
